FAERS Safety Report 5294660-3 (Version None)
Quarter: 2007Q1

REPORT INFORMATION
  Report Type: 
  Country: None (occurrence: None)
  Receive Date: 20070116
  Receipt Date: 20060711
  Transmission Date: 20070707
  Serious: Yes (Other)
  Sender: FDA-Public Use
  Company Number: HQWYE890713JUL06

PATIENT
  Sex: Female

DRUGS (2)
  1. PREMPRO [Suspect]
     Indication: HORMONE THERAPY
     Dosage: .625 MG FOR 192 MONTHS (16 YEARS), ORAL
     Route: 048
     Dates: start: 19580101, end: 19940101
  2. PREMARIN [Suspect]

REACTIONS (1)
  - BREAST CANCER [None]
